FAERS Safety Report 4382222-1 (Version None)
Quarter: 2004Q2

REPORT INFORMATION
  Report Type: 
  Country: None (occurrence: None)
  Receive Date: 20040615
  Receipt Date: 20040528
  Transmission Date: 20050107
  Serious: Yes (Death)
  Sender: FDA-Public Use
  Company Number: A03200401773

PATIENT

DRUGS (2)
  1. PLAVIX [Suspect]
     Dosage: ORAL
     Route: 048
  2. WARFARIN - TABLET - UNIT DOSE : UNKNOWN [Suspect]
     Dosage: ORAL
     Route: 048

REACTIONS (1)
  - DEATH [None]
